FAERS Safety Report 14669894 (Version 1)
Quarter: 2018Q1

REPORT INFORMATION
  Report Type: Spontaneous
  Country: CA (occurrence: CA)
  Receive Date: 20180322
  Receipt Date: 20180322
  Transmission Date: 20180509
  Serious: Yes (Other)
  Sender: FDA-Public Use
  Company Number: CA-BAYER-2018-051716

PATIENT
  Age: 42 Year
  Sex: Female
  Weight: 71.6 kg

DRUGS (2)
  1. MIRENA [Suspect]
     Active Substance: LEVONORGESTREL
     Indication: MENORRHAGIA
     Dosage: 20 MCG/24HR, CONT
     Route: 015
  2. MIRENA [Suspect]
     Active Substance: LEVONORGESTREL
     Indication: MENORRHAGIA

REACTIONS (8)
  - Acne [Unknown]
  - Alopecia [Unknown]
  - Premenstrual pain [Unknown]
  - Back pain [Unknown]
  - Coital bleeding [Unknown]
  - Panic attack [Unknown]
  - Hypoaesthesia [Unknown]
  - Abdominal pain lower [Unknown]
